FAERS Safety Report 23817882 (Version 2)
Quarter: 2024Q2

REPORT INFORMATION
  Report Type: Spontaneous
  Country: US (occurrence: US)
  Receive Date: 20240506
  Receipt Date: 20240627
  Transmission Date: 20240716
  Serious: Yes (Other)
  Sender: FDA-Public Use
  Company Number: US-HALEON-2172182

PATIENT
  Age: 18 Year
  Sex: Male

DRUGS (1)
  1. ADVIL [Suspect]
     Active Substance: IBUPROFEN\IBUPROFEN SODIUM
     Indication: Headache
     Dosage: EXPDATE:20260430
     Dates: start: 20240426

REACTIONS (10)
  - Anaphylactic reaction [Unknown]
  - Urticaria [Unknown]
  - Hypotension [Unknown]
  - Abdominal pain upper [Unknown]
  - Cough [Unknown]
  - Wheezing [Unknown]
  - Paraesthesia oral [Unknown]
  - Lip swelling [Unknown]
  - Ocular hyperaemia [Unknown]
  - Lacrimation increased [Unknown]

NARRATIVE: CASE EVENT DATE: 20240426
